FAERS Safety Report 7659202-3 (Version None)
Quarter: 2011Q3

REPORT INFORMATION
  Report Type: 
  Country: None (occurrence: None)
  Receive Date: 20110805
  Receipt Date: 20110727
  Transmission Date: 20111222
  Serious: Yes (Hospitalization)
  Sender: FDA-Public Use
  Company Number: US-ASTRAZENECA-2011SE45080

PATIENT
  Age: 59 Year
  Sex: Female

DRUGS (16)
  1. SEROQUEL XR [Suspect]
     Route: 048
     Dates: start: 20030101, end: 20110201
  2. ZONEGRAN [Concomitant]
  3. PHENERGAN HCL [Concomitant]
  4. ZOMIG [Suspect]
     Dosage: PRN
     Route: 045
     Dates: start: 20100201, end: 20110201
  5. FIORICET [Concomitant]
  6. SEROQUEL XR [Suspect]
     Route: 048
     Dates: start: 20030101, end: 20110201
  7. ZOMIG [Suspect]
     Indication: MIGRAINE
     Route: 048
     Dates: start: 20030101, end: 20110201
  8. FLEXERIL [Concomitant]
  9. SEROQUEL XR [Suspect]
     Indication: MIGRAINE
     Route: 048
     Dates: start: 20030101, end: 20110201
  10. SEROQUEL XR [Suspect]
     Indication: MAJOR DEPRESSION
     Route: 048
     Dates: start: 20030101, end: 20110201
  11. SEROQUEL XR [Suspect]
     Route: 048
     Dates: start: 20030101, end: 20110201
  12. WELLBUTRIN [Concomitant]
  13. NEURONTIN [Concomitant]
  14. SEROQUEL XR [Suspect]
     Route: 048
     Dates: start: 20030101, end: 20110201
  15. DOXEPIN [Concomitant]
  16. AMBIEN [Concomitant]

REACTIONS (6)
  - INSOMNIA [None]
  - DRUG DOSE OMISSION [None]
  - MIGRAINE [None]
  - ACTIVITIES OF DAILY LIVING IMPAIRED [None]
  - OFF LABEL USE [None]
  - POOR QUALITY SLEEP [None]
